FAERS Safety Report 10258150 (Version 1)
Quarter: 2014Q2

REPORT INFORMATION
  Report Type: Spontaneous
  Country: DK (occurrence: DK)
  Receive Date: 20140625
  Receipt Date: 20140625
  Transmission Date: 20141212
  Serious: Yes (Death)
  Sender: FDA-Public Use
  Company Number: DK-ROXANE LABORATORIES, INC.-2014-RO-00976RO

PATIENT
  Age: 62 Year
  Sex: Female

DRUGS (3)
  1. FLUCONAZOLE [Suspect]
     Indication: EVIDENCE BASED TREATMENT
     Dosage: 200 MG
     Route: 065
  2. FLUCONAZOLE [Suspect]
     Dosage: 200 MG
     Route: 065
  3. CASPOFUNGIN [Suspect]
     Indication: PRODUCT USED FOR UNKNOWN INDICATION
     Dosage: 50 MG
     Route: 065

REACTIONS (2)
  - Cerebral infarction [Fatal]
  - Candida infection [Fatal]
